FAERS Safety Report 17979576 (Version 2)
Quarter: 2020Q3

REPORT INFORMATION
  Report Type: Spontaneous
  Country: BR (occurrence: BR)
  Receive Date: 20200703
  Receipt Date: 20200704
  Transmission Date: 20201103
  Serious: No
  Sender: FDA-Public Use
  Company Number: BR-009507513-2007BRA001142

PATIENT
  Age: 29 Year
  Sex: Female
  Weight: 110 kg

DRUGS (2)
  1. NASONEX [Suspect]
     Active Substance: MOMETASONE FUROATE
     Indication: RHINITIS ALLERGIC
     Dosage: 1 DOSAGE FORM, QD, DECREASED THE APPLICATIONS (TO 1 TIME A DAY)
     Route: 045
     Dates: start: 2020
  2. NASONEX [Suspect]
     Active Substance: MOMETASONE FUROATE
     Indication: SEASONAL ALLERGY
     Dosage: 1 DOSAGE FORM, BID, 1 JET IN EACH NOSTRIL, IN THE MORNING AND AT NIGHT
     Route: 045
     Dates: start: 2020

REACTIONS (3)
  - Rhinorrhoea [Recovering/Resolving]
  - Rhinalgia [Recovering/Resolving]
  - Epistaxis [Recovering/Resolving]

NARRATIVE: CASE EVENT DATE: 20200622
